FAERS Safety Report 7886694-7 (Version None)
Quarter: 2011Q4

REPORT INFORMATION
  Report Type: 
  Country: None (occurrence: None)
  Receive Date: 20111102
  Receipt Date: 20110709
  Transmission Date: 20120403
  Serious: No
  Sender: FDA-Public Use
  Company Number: US-AMGEN-USASP2011034953

PATIENT
  Age: 43 Year
  Sex: Male

DRUGS (2)
  1. CHLORAMPHENICOL [Concomitant]
     Indication: SINUSITIS
     Dosage: UNK
  2. ENBREL [Suspect]
     Indication: PSORIASIS
     Dosage: 50 MG, 2 TIMES/WK
     Dates: start: 20110516

REACTIONS (2)
  - SINUSITIS [None]
  - PSORIASIS [None]
